FAERS Safety Report 7883723-1 (Version None)
Quarter: 2011Q4

REPORT INFORMATION
  Report Type: 
  Country: None (occurrence: None)
  Receive Date: 20111102
  Receipt Date: 20111026
  Transmission Date: 20120403
  Serious: Yes (Other)
  Sender: FDA-Public Use
  Company Number: US-JNJFOC-20111011897

PATIENT
  Sex: Female

DRUGS (1)
  1. REMICADE [Suspect]
     Indication: AUTOIMMUNE DISORDER
     Route: 042

REACTIONS (1)
  - NEOPLASM MALIGNANT [None]
